FAERS Safety Report 8244241-4 (Version None)
Quarter: 2012Q1

REPORT INFORMATION
  Report Type: 
  Country: None (occurrence: None)
  Receive Date: 20120329
  Receipt Date: 20120322
  Transmission Date: 20120608
  Serious: Yes (Hospitalization)
  Sender: FDA-Public Use
  Company Number: US-ACTELION-A-US2012-60443

PATIENT

DRUGS (2)
  1. TRACLEER [Suspect]
     Indication: PULMONARY ARTERIAL HYPERTENSION
     Dosage: UNK
     Route: 050
     Dates: start: 20111024
  2. REVATIO [Concomitant]

REACTIONS (7)
  - UPPER RESPIRATORY TRACT INFECTION [None]
  - NASOPHARYNGITIS [None]
  - PERIPHERAL COLDNESS [None]
  - HEADACHE [None]
  - COUGH [None]
  - EPISTAXIS [None]
  - THROMBOCYTOPENIA [None]
